FAERS Safety Report 17770124 (Version 1)
Quarter: 2020Q2

REPORT INFORMATION
  Report Type: Spontaneous
  Country: US (occurrence: US)
  Receive Date: 20200511
  Receipt Date: 20200511
  Transmission Date: 20200714
  Serious: No
  Sender: FDA-Public Use
  Company Number: None

PATIENT
  Age: 24 Year
  Sex: Male

DRUGS (13)
  1. ZENPEP [Suspect]
     Active Substance: PANCRELIPASE AMYLASE\PANCRELIPASE LIPASE\PANCRELIPASE PROTEASE
     Indication: CYSTIC FIBROSIS
     Route: 048
     Dates: start: 20160614
  2. AZITHROMYCIN ANHYDROUS. [Concomitant]
     Active Substance: AZITHROMYCIN ANHYDROUS
  3. PROAIR HFA [Concomitant]
     Active Substance: ALBUTEROL SULFATE
  4. TOBI PODHALER [Concomitant]
     Active Substance: TOBRAMYCIN
  5. FLUTICASONE. [Concomitant]
     Active Substance: FLUTICASONE
  6. SOD CHL 7% [Concomitant]
     Active Substance: SODIUM CHLORIDE
  7. MINOCYCLINE [Concomitant]
     Active Substance: MINOCYCLINE HYDROCHLORIDE
  8. QVAR REDIHAL [Concomitant]
  9. LINEZOLID. [Concomitant]
     Active Substance: LINEZOLID
  10. PULMOZYME [Concomitant]
     Active Substance: DORNASE ALFA
  11. COMPLETE FORM D5000 SOFTGEL [Concomitant]
  12. RANITIDINE. [Concomitant]
     Active Substance: RANITIDINE
  13. SOD CHL 7% NEPHRON [Concomitant]

REACTIONS (1)
  - Pneumonia [None]

NARRATIVE: CASE EVENT DATE: 20200506
